FAERS Safety Report 6285408-4 (Version None)
Quarter: 2009Q3

REPORT INFORMATION
  Report Type: 
  Country: None (occurrence: None)
  Receive Date: 20090727
  Receipt Date: 20090722
  Transmission Date: 20100115
  Serious: No
  Sender: FDA-Public Use
  Company Number: US-B.I. PHARMACEUTICALS,INC./RIDGEFIELD-2009-BP-08713BP

PATIENT
  Sex: Male

DRUGS (3)
  1. ZANTAC 75 [Suspect]
     Indication: DYSPEPSIA
     Dosage: 150 MG
     Route: 048
     Dates: start: 20090708
  2. PLAVIX [Concomitant]
     Indication: ANTIPLATELET THERAPY
     Route: 048
     Dates: start: 20080101
  3. AVODART [Concomitant]
     Indication: PROSTATOMEGALY
     Route: 048
     Dates: start: 20070101

REACTIONS (3)
  - INCORRECT DRUG ADMINISTRATION DURATION [None]
  - NAUSEA [None]
  - SALIVARY HYPERSECRETION [None]
